FAERS Safety Report 7059660-1 (Version None)
Quarter: 2010Q4

REPORT INFORMATION
  Report Type: 
  Country: None (occurrence: None)
  Receive Date: 20101025
  Receipt Date: 20101014
  Transmission Date: 20110411
  Serious: Yes (Hospitalization, Other)
  Sender: FDA-Public Use
  Company Number: SE-ASTRAZENECA-2010SE48688

PATIENT
  Sex: Female

DRUGS (22)
  1. NEXIUM [Suspect]
     Indication: GASTRITIS
     Route: 048
     Dates: start: 20100913
  2. NEXIUM [Interacting]
     Indication: HELICOBACTER INFECTION
     Route: 048
     Dates: start: 20100913
  3. KLACID [Interacting]
     Indication: GASTRITIS
     Route: 048
     Dates: start: 20100913
  4. KLACID [Interacting]
     Indication: HELICOBACTER INFECTION
     Route: 048
     Dates: start: 20100913
  5. AMIMOX [Interacting]
     Indication: GASTRITIS
     Route: 048
     Dates: start: 20100913
  6. AMIMOX [Interacting]
     Indication: HELICOBACTER INFECTION
     Route: 048
     Dates: start: 20100913
  7. SIMVASTATIN [Interacting]
     Indication: HYPERLIPIDAEMIA
     Route: 048
     Dates: start: 20100913
  8. SIMVASTATIN [Interacting]
     Indication: HYPERTRIGLYCERIDAEMIA
     Route: 048
     Dates: start: 20100913
  9. ATACAND [Concomitant]
     Route: 048
  10. KALCIPOS-D [Concomitant]
  11. FELODIPINE [Concomitant]
  12. KLOZAPIN [Concomitant]
  13. NITROMEX [Concomitant]
     Route: 060
  14. ACETAMINOPHEN [Concomitant]
  15. IMPUGAN [Concomitant]
  16. LASIX [Concomitant]
  17. CISORDINOL [Concomitant]
  18. DAKTACORT [Concomitant]
     Dosage: 20 MG/G + 10MG/G
  19. ASPIRIN [Concomitant]
  20. ATENOLOL [Concomitant]
  21. NULYTELY [Concomitant]
     Route: 048
  22. INSULATARD [Concomitant]

REACTIONS (2)
  - DRUG INTERACTION [None]
  - MYOPATHY [None]
